FAERS Safety Report 20326694 (Version 1)
Quarter: 2022Q1

REPORT INFORMATION
  Report Type: Spontaneous
  Country: US (occurrence: US)
  Receive Date: 20220112
  Receipt Date: 20220112
  Transmission Date: 20220423
  Serious: Yes (Other)
  Sender: FDA-Public Use
  Company Number: US-PROCTER_AND_GAMBLE-GS22000323

PATIENT
  Age: 60 Year
  Sex: Female

DRUGS (1)
  1. SECRET ANTIPERSPIRANT POWDER FRESH [Suspect]
     Active Substance: ALUMINUM CHLOROHYDRATE
     Dosage: 2 SPRAYS UNDER EACH ARM, EVERY DAY UP TO 2-3X A DAY
     Route: 061
     Dates: end: 202112

REACTIONS (1)
  - Breast cancer [Not Recovered/Not Resolved]
